FAERS Safety Report 26113515 (Version 1)
Quarter: 2025Q4

REPORT INFORMATION
  Report Type: Spontaneous
  Country: EU (occurrence: EU)
  Receive Date: 20251202
  Receipt Date: 20251202
  Transmission Date: 20260118
  Serious: Yes (Death)
  Sender: MYLAN
  Company Number: None

PATIENT
  Age: 81 Year
  Sex: Female
  Weight: 77 kg

DRUGS (13)
  1. ZOLEDRONIC ACID [Suspect]
     Active Substance: ZOLEDRONIC ACID
     Indication: Osteoporosis prophylaxis
     Dosage: 5 MILLIGRAM, QD (5MG ONCE DAILY)
     Dates: start: 20251030
  2. METFORMIN HYDROCHLORIDE [Concomitant]
     Active Substance: METFORMIN HYDROCHLORIDE
     Dosage: 500 MILLIGRAM (TABLET, 500 MG (MILLIGRAM) )
  3. TOLBUTAMIDE [Concomitant]
     Active Substance: TOLBUTAMIDE
     Dosage: 500 MILLIGRAM (TABLET, 500 MG (MILLIGRAM))
  4. DAPAGLIFLOZIN [Concomitant]
     Active Substance: DAPAGLIFLOZIN
     Dosage: 10 MILLIGRAM (TABLET, 10 MG (MILLIGRAM)  )
  5. SPIRONOLACTONE [Concomitant]
     Active Substance: SPIRONOLACTONE
     Dosage: 50 MILLIGRAM (TABLET, 50 MG (MILLIGRAM)  )
  6. ATENOLOL [Concomitant]
     Active Substance: ATENOLOL
     Dosage: 100 MILLIGRAM (TABLET, 100 MG (MILLIGRAM))
  7. BARNIDIPINE [Concomitant]
     Active Substance: BARNIDIPINE
     Dosage: 10 MILLIGRAM (MODIFIED-RELEASE CAPSULE, 10MG (MILLIGRAMS))
  8. LISINOPRIL [Concomitant]
     Active Substance: LISINOPRIL
     Dosage: 20 MILLIGRAM (TABLET, 20 MG (MILLIGRAM))
  9. EUTHYROX [Concomitant]
     Active Substance: LEVOTHYROXINE SODIUM
     Dosage: 100 MICROGRAM (TABLET, 100 ?G (MICROGRAM)  )
  10. FERROUS FUMARATE [Concomitant]
     Active Substance: FERROUS FUMARATE
     Dosage: 200 MILLIGRAM (TABLET, 200 MG (MILLIGRAM))
  11. INSULIN GLARGINE [Concomitant]
     Active Substance: INSULIN GLARGINE
     Dosage: UNK (INJECTION, 100 UNITS/ML (UNITS PER MILLILITER))
  12. DEXTROSE [Concomitant]
     Active Substance: DEXTROSE MONOHYDRATE
     Dosage: 50 MILLIGRAM PER MILLILITRE (INFUSION, 50MG/ML (MILLIGRAMS PER MILLILITER))
  13. CALCIUM CARBONATE\CHOLECALCIFEROL [Concomitant]
     Active Substance: CALCIUM CARBONATE\CHOLECALCIFEROL
     Dosage: UNK (CHEWABLE TABLET, 1.25 G (GRAM)/800 UNITS)

REACTIONS (2)
  - Bradycardia [Fatal]
  - Hypotension [Fatal]
